FAERS Safety Report 17959141 (Version 1)
Quarter: 2020Q2

REPORT INFORMATION
  Report Type: Spontaneous
  Country: US (occurrence: US)
  Receive Date: 20200630
  Receipt Date: 20200630
  Transmission Date: 20200714
  Serious: No
  Sender: FDA-Public Use
  Company Number: NVSC2020US183145

PATIENT
  Age: 81 Year
  Sex: Female

DRUGS (1)
  1. VOLTAREN [Suspect]
     Active Substance: DICLOFENAC SODIUM
     Indication: ARTHRITIS
     Dosage: ONE APPLICATION WITH THE LITTLE CARD (50 G)
     Route: 065
     Dates: start: 20200616, end: 20200617

REACTIONS (5)
  - Inappropriate schedule of product administration [Unknown]
  - Pain in extremity [Unknown]
  - Peripheral swelling [Unknown]
  - Pyrexia [Unknown]
  - Drug hypersensitivity [Unknown]

NARRATIVE: CASE EVENT DATE: 20200616
